FAERS Safety Report 9276522 (Version 1)
Quarter: 2013Q2

REPORT INFORMATION
  Report Type: Spontaneous
  Country: US (occurrence: US)
  Receive Date: 20130507
  Receipt Date: 20130507
  Transmission Date: 20140414
  Serious: Yes (Other)
  Sender: FDA-Public Use
  Company Number: US-PFIZER INC-2013140284

PATIENT
  Sex: 0

DRUGS (1)
  1. CHANTIX [Suspect]
     Dosage: UNK

REACTIONS (5)
  - Hallucination [Unknown]
  - Nightmare [Not Recovered/Not Resolved]
  - Abnormal behaviour [Unknown]
  - Somnambulism [Unknown]
  - Dyskinesia [Unknown]
